FAERS Safety Report 8622074-4 (Version None)
Quarter: 2012Q3

REPORT INFORMATION
  Report Type: 
  Country: None (occurrence: None)
  Receive Date: 20120823
  Receipt Date: 20120823
  Transmission Date: 20120928
  Serious: Yes (Disabling)
  Sender: FDA-Public Use
  Company Number: None

PATIENT
  Sex: Female
  Weight: 49.8957 kg

DRUGS (1)
  1. PERCOCET [Suspect]
     Indication: PAIN
     Dosage: ONE EVERY 4 HOURS PRN
     Dates: start: 20110603, end: 20110606

REACTIONS (6)
  - RESTLESS LEGS SYNDROME [None]
  - PRODUCT SUBSTITUTION ISSUE [None]
  - HEART RATE INCREASED [None]
  - DRUG WITHDRAWAL SYNDROME [None]
  - PAIN [None]
  - PRODUCT QUALITY ISSUE [None]
